FAERS Safety Report 21094624 (Version 1)
Quarter: 2022Q3

REPORT INFORMATION
  Report Type: Spontaneous
  Country: US (occurrence: None)
  Receive Date: 20220715
  Receipt Date: 20220715
  Transmission Date: 20221026
  Serious: Yes (Other)
  Sender: FDA-Public Use
  Company Number: None

PATIENT
  Age: 47 Year
  Weight: 118.8 kg

DRUGS (1)
  1. BUPRENORPHINE AND NALOXONE SUBLINGUAL [Suspect]
     Active Substance: BUPRENORPHINE HYDROCHLORIDE\NALOXONE HYDROCHLORIDE
     Indication: Drug dependence
     Dosage: OTHER STRENGTH : 1;?OTHER QUANTITY : 1 1;?FREQUENCY : TWICE A DAY;?
     Route: 060
     Dates: start: 20140101

REACTIONS (4)
  - Tooth loss [None]
  - Tooth fracture [None]
  - Product size issue [None]
  - Product substitution issue [None]

NARRATIVE: CASE EVENT DATE: 20200320
